FAERS Safety Report 5411497-2 (Version None)
Quarter: 2007Q3

REPORT INFORMATION
  Report Type: 
  Country: None (occurrence: None)
  Receive Date: 20070810
  Receipt Date: 20070731
  Transmission Date: 20080115
  Serious: Yes (Hospitalization, Other)
  Sender: FDA-Public Use
  Company Number: AT-PFIZER INC-2006067056

PATIENT
  Age: 61 Year
  Sex: Female

DRUGS (10)
  1. GLADEM [Interacting]
     Indication: SOMATOFORM DISORDER
     Dosage: DAILY DOSE:50MG
     Route: 048
     Dates: start: 20060413, end: 20060420
  2. XANOR [Suspect]
     Indication: SOMATOFORM DISORDER
     Dosage: DAILY DOSE:.75MG
     Route: 048
  3. REMERON [Suspect]
     Indication: SOMATOFORM DISORDER
     Dosage: DAILY DOSE:15MG
     Route: 048
  4. PANTOLOC ^BYK^ [Interacting]
     Dosage: DAILY DOSE:20MG
     Route: 048
  5. RESPICUR - SLOW RELEASE [Concomitant]
     Route: 065
  6. SPIRIVA ^PFIZER^ [Concomitant]
     Route: 065
  7. CONCOR COR [Concomitant]
     Route: 065
  8. OXIS [Concomitant]
     Route: 055
  9. PULMICORT [Concomitant]
     Route: 065
  10. BERODUAL [Concomitant]
     Route: 055

REACTIONS (5)
  - DIZZINESS [None]
  - DRUG INTERACTION [None]
  - INITIAL INSOMNIA [None]
  - MYALGIA [None]
  - SOMNOLENCE [None]
